FAERS Safety Report 21074338 (Version 2)
Quarter: 2022Q3

REPORT INFORMATION
  Report Type: Spontaneous
  Country: US (occurrence: US)
  Receive Date: 20220713
  Receipt Date: 20220819
  Transmission Date: 20221027
  Serious: Yes (Death, Other)
  Sender: FDA-Public Use
  Company Number: US-SA-SAC20220710000091

PATIENT
  Age: 61 Year
  Sex: Male

DRUGS (1)
  1. ZANTAC [Suspect]
     Active Substance: RANITIDINE HYDROCHLORIDE
     Indication: Dyspepsia
     Dosage: 75 MG,QW
     Route: 048
     Dates: start: 201801, end: 201906

REACTIONS (7)
  - Prostate cancer stage I [Fatal]
  - Disability [Fatal]
  - Pain [Fatal]
  - Anhedonia [Fatal]
  - Deformity [Fatal]
  - Injury [Fatal]
  - Anxiety [Fatal]

NARRATIVE: CASE EVENT DATE: 20210301
